FAERS Safety Report 19843343 (Version 1)
Quarter: 2021Q3

REPORT INFORMATION
  Report Type: Spontaneous
  Country: CH (occurrence: CH)
  Receive Date: 20210917
  Receipt Date: 20210917
  Transmission Date: 20211014
  Serious: Yes (Hospitalization, Other)
  Sender: FDA-Public Use
  Company Number: CH-SUN PHARMACEUTICAL INDUSTRIES LTD-2021RR-311418

PATIENT
  Age: 83 Year
  Sex: Female

DRUGS (4)
  1. AMIODARONE [Interacting]
     Active Substance: AMIODARONE
     Indication: CARDIAC FAILURE
     Dosage: UNK
     Route: 065
  2. FEXOFENADINE [Interacting]
     Active Substance: FEXOFENADINE HYDROCHLORIDE
     Indication: SUBARACHNOID HAEMORRHAGE
     Dosage: UNK
     Route: 065
  3. CARVEDILOL. [Suspect]
     Active Substance: CARVEDILOL
     Indication: ATRIAL FIBRILLATION
     Dosage: 25 MILLIGRAM, QD
     Route: 065
  4. DABIGATRAN ETEXILATE [Interacting]
     Active Substance: DABIGATRAN ETEXILATE
     Indication: ATRIAL FIBRILLATION
     Dosage: 110 MILLIGRAM, BID
     Route: 065

REACTIONS (5)
  - Subarachnoid haemorrhage [Unknown]
  - Drug level increased [Unknown]
  - Drug ineffective [Unknown]
  - Drug interaction [Unknown]
  - Lupus-like syndrome [Unknown]
